FAERS Safety Report 8097807-9 (Version None)
Quarter: 2012Q1

REPORT INFORMATION
  Report Type: 
  Country: None (occurrence: None)
  Receive Date: 20120128
  Receipt Date: 20110805
  Transmission Date: 20120608
  Serious: No
  Sender: FDA-Public Use
  Company Number: US-ABBOTT-11P-163-0844343-00

PATIENT
  Sex: Female
  Weight: 64.468 kg

DRUGS (2)
  1. SARAFEM [Concomitant]
     Indication: PREMENSTRUAL SYNDROME
  2. HUMIRA [Suspect]
     Indication: CROHN'S DISEASE
     Dosage: STARTING DOSE, INTERRUPTED
     Dates: start: 20110719, end: 20110719

REACTIONS (4)
  - RASH [None]
  - RASH PAPULAR [None]
  - URTICARIA [None]
  - RASH ERYTHEMATOUS [None]
